FAERS Safety Report 10483912 (Version 1)
Quarter: 2014Q3

REPORT INFORMATION
  Report Type: Spontaneous
  Country: IT (occurrence: IT)
  Receive Date: 20140930
  Receipt Date: 20140930
  Transmission Date: 20150326
  Serious: Yes (Hospitalization, Other)
  Sender: FDA-Public Use
  Company Number: IT-AMGEN-ITASP2014073589

PATIENT
  Age: 70 Year
  Sex: Female

DRUGS (6)
  1. CLOPIDOGREL ACINO [Concomitant]
     Indication: THROMBOSIS PROPHYLAXIS
     Dosage: 75 MG, UNK
     Route: 048
  2. ZANTIPRIDE [Concomitant]
     Active Substance: ZOFENOPRIL
     Indication: ESSENTIAL HYPERTENSION
     Dosage: 30 MG + 12.5 MG MG, UNK
     Route: 048
  3. TRENTAL [Concomitant]
     Active Substance: PENTOXIFYLLINE
     Indication: VARICOSE VEIN
     Dosage: 400 MG, UNK
  4. PROLIA [Suspect]
     Active Substance: DENOSUMAB
     Indication: OSTEOPOROSIS
     Dosage: 60 MG, CYCLICAL
     Route: 058
     Dates: start: 20140320, end: 20140320
  5. DIBASE [Concomitant]
     Active Substance: CHOLECALCIFEROL
     Indication: VITAMIN D DEFICIENCY
     Dosage: 25000 IU/2.5 ML
     Route: 048
  6. PANTORC [Concomitant]
     Active Substance: PANTOPRAZOLE SODIUM
     Indication: ANASTOMOTIC ULCER
     Dosage: 20 MG, UNK
     Route: 048

REACTIONS (2)
  - Injury [Unknown]
  - Femur fracture [Unknown]

NARRATIVE: CASE EVENT DATE: 20140818
